FAERS Safety Report 5240719-6 (Version None)
Quarter: 2007Q1

REPORT INFORMATION
  Report Type: 
  Country: None (occurrence: None)
  Receive Date: 20061208
  Receipt Date: 20051207
  Transmission Date: 20070707
  Serious: Yes (Other)
  Sender: FDA-Public Use
  Company Number: 2005UW09768

PATIENT
  Age: 68 Year
  Sex: Female

DRUGS (1)
  1. CRESTOR [Suspect]
     Indication: BLOOD CHOLESTEROL INCREASED
     Dosage: 10 MG HS PO
     Route: 048
     Dates: start: 20040101, end: 20050101

REACTIONS (11)
  - ABDOMINAL PAIN LOWER [None]
  - ARTHRALGIA [None]
  - ASTHENIA [None]
  - BACK PAIN [None]
  - BURNING SENSATION [None]
  - CHEST PAIN [None]
  - DRY SKIN [None]
  - DYSURIA [None]
  - PAIN IN EXTREMITY [None]
  - RASH [None]
  - SKIN DISCOLOURATION [None]
